FAERS Safety Report 22741571 (Version 15)
Quarter: 2024Q4

REPORT INFORMATION
  Report Type: Report from Study
  Country: CA (occurrence: CA)
  Receive Date: 20230724
  Receipt Date: 20241127
  Transmission Date: 20250114
  Serious: Yes (Other)
  Sender: CELLTRION
  Company Number: CA-CELLTRION INC.-2021CA019449

PATIENT

DRUGS (32)
  1. INFLIXIMAB-DYYB [Suspect]
     Active Substance: INFLIXIMAB-DYYB
     Indication: Rheumatoid arthritis
     Dosage: 120 MILLIGRAM PER MILLILITRE, EVERY 2 WEEKS
     Route: 058
     Dates: start: 20210902
  2. INFLIXIMAB-DYYB [Suspect]
     Active Substance: INFLIXIMAB-DYYB
     Dosage: 120 MILLIGRAM PER MILLILITRE, EVERY 2 WEEKS
     Route: 058
     Dates: start: 20211125
  3. INFLIXIMAB-DYYB [Suspect]
     Active Substance: INFLIXIMAB-DYYB
     Dosage: DIRECT AUTO-INJECTOR, DOSE FREQUENCY: WEEKS
     Route: 058
     Dates: start: 20211125
  4. INFLIXIMAB-DYYB [Suspect]
     Active Substance: INFLIXIMAB-DYYB
     Dosage: UNK
  5. INFLIXIMAB-DYYB [Suspect]
     Active Substance: INFLIXIMAB-DYYB
     Dosage: MOST RECENT
     Dates: start: 20211223
  6. INFLIXIMAB-DYYB [Suspect]
     Active Substance: INFLIXIMAB-DYYB
     Dosage: 120 MILLIGRAM PER MILLILITRE, EVERY 2 WEEKS (NEXT INJECTION IS DUE TOMORROW MAY 19TH 2022)
     Route: 058
     Dates: start: 20220519
  7. INFLIXIMAB-DYYB [Suspect]
     Active Substance: INFLIXIMAB-DYYB
     Dosage: MOST RECENT
     Route: 058
     Dates: start: 20220714
  8. INFLIXIMAB-DYYB [Suspect]
     Active Substance: INFLIXIMAB-DYYB
     Dosage: 120 MILLIGRAM PER MILLILITRE, DIRECT AUTO-INJECTOR, WEEKS/WEEKS-2 WEEKS
     Route: 058
     Dates: start: 20211125
  9. INFLIXIMAB-DYYB [Suspect]
     Active Substance: INFLIXIMAB-DYYB
     Dosage: MOST RECENT
     Route: 058
     Dates: start: 20230210
  10. INFLIXIMAB-DYYB [Suspect]
     Active Substance: INFLIXIMAB-DYYB
     Dosage: 120 MILLIGRAM, WEEKS/EVERY 2 WEEKS (DIRECT AUTO-INJECTOR)
     Route: 058
     Dates: start: 20230323
  11. INFLIXIMAB-DYYB [Suspect]
     Active Substance: INFLIXIMAB-DYYB
     Dosage: 120 MILLIGRAM PER MILLILITRE, EVERY 2 WEEKS
     Route: 058
     Dates: start: 20230713
  12. INFLIXIMAB-DYYB [Suspect]
     Active Substance: INFLIXIMAB-DYYB
     Dosage: 120 MG/ML 2 WEEKS
     Route: 058
     Dates: start: 20240718
  13. INFLIXIMAB-DYYB [Suspect]
     Active Substance: INFLIXIMAB-DYYB
     Dosage: 120 MG/ML 2 WEEKS
     Route: 058
     Dates: start: 20240815
  14. INFLIXIMAB-DYYB [Suspect]
     Active Substance: INFLIXIMAB-DYYB
     Dosage: 120 MG/ML 2 WEEKS
     Route: 058
     Dates: start: 20240829
  15. INFLIXIMAB-DYYB [Suspect]
     Active Substance: INFLIXIMAB-DYYB
     Dosage: 120 MG/ML 2 WEEKS
     Route: 058
     Dates: start: 20240905
  16. INFLIXIMAB-DYYB [Suspect]
     Active Substance: INFLIXIMAB-DYYB
     Dosage: 120MG SC Q 2 WEEKS
     Route: 058
     Dates: start: 20241025
  17. METHOTREXATE [Concomitant]
     Active Substance: METHOTREXATE
     Dosage: UNK
     Dates: start: 201711
  18. LEFLUNOMIDE [Concomitant]
     Active Substance: LEFLUNOMIDE
     Dosage: UNK
     Dates: start: 201806
  19. LEFLUNOMIDE [Concomitant]
     Active Substance: LEFLUNOMIDE
     Dosage: UNK
     Dates: start: 20220926
  20. COUMADIN [Concomitant]
     Active Substance: WARFARIN SODIUM
     Dosage: UNK
  21. COUMADIN [Concomitant]
     Active Substance: WARFARIN SODIUM
     Dosage: UNK
  22. PREDNISONE [Concomitant]
     Active Substance: PREDNISONE
     Dosage: UNK
  23. IRBESARTAN [Concomitant]
     Active Substance: IRBESARTAN
     Dosage: UNK
  24. FOLIC ACID [Concomitant]
     Active Substance: FOLIC ACID
     Dosage: UNK
  25. CALCIUM [Concomitant]
     Active Substance: CALCIUM
     Dosage: UNK
  26. PANTOPRAZOLE [Concomitant]
     Active Substance: PANTOPRAZOLE
     Dosage: UNK
  27. PLAQUENIL [Concomitant]
     Active Substance: HYDROXYCHLOROQUINE SULFATE
     Dosage: UNK
     Dates: start: 201711
  28. SULFASALAZINE [Concomitant]
     Active Substance: SULFASALAZINE
     Dosage: UNK
     Dates: start: 20210603
  29. HYDROXYCHLOROQUINE [Concomitant]
     Active Substance: HYDROXYCHLOROQUINE
  30. ALBUTEROL [Concomitant]
     Active Substance: ALBUTEROL
  31. ARNUITY ELLIPTA [Concomitant]
     Active Substance: FLUTICASONE FUROATE
  32. SHINGRIX [Concomitant]
     Active Substance: RECOMBINANT VARICELLA ZOSTER VIRUS (VZV) GLYCOPROTEIN E
     Dosage: UNK
     Dates: start: 20220413

REACTIONS (36)
  - Loss of consciousness [Unknown]
  - Dysphonia [Recovered/Resolved]
  - Foot deformity [Not Recovered/Not Resolved]
  - Pneumothorax [Unknown]
  - Rheumatoid arthritis [Recovered/Resolved]
  - Rib fracture [Unknown]
  - Chondropathy [Unknown]
  - Bronchitis [Recovering/Resolving]
  - Chills [Unknown]
  - Arthropod sting [Recovering/Resolving]
  - International normalised ratio increased [Unknown]
  - Musculoskeletal chest pain [Unknown]
  - Productive cough [Recovering/Resolving]
  - Rhinorrhoea [Recovered/Resolved]
  - Blister [Recovered/Resolved]
  - Cough [Recovered/Resolved]
  - Dizziness [Unknown]
  - Dry skin [Not Recovered/Not Resolved]
  - Eczema [Not Recovered/Not Resolved]
  - Epistaxis [Unknown]
  - Headache [Unknown]
  - Hypoaesthesia oral [Recovered/Resolved]
  - Injection site pain [Recovered/Resolved]
  - Nausea [Unknown]
  - Oropharyngeal pain [Recovered/Resolved]
  - Pruritus [Unknown]
  - Pruritus [Recovered/Resolved]
  - Pyrexia [Unknown]
  - Rash [Unknown]
  - Wound infection [Recovered/Resolved]
  - Wound infection [Unknown]
  - Phlebitis [Not Recovered/Not Resolved]
  - Impaired healing [Recovering/Resolving]
  - Intentional dose omission [Unknown]
  - Product dose omission in error [Recovered/Resolved]
  - Inappropriate schedule of product administration [Unknown]

NARRATIVE: CASE EVENT DATE: 20211125
